FAERS Safety Report 6930311-7 (Version None)
Quarter: 2010Q3

REPORT INFORMATION
  Report Type: 
  Country: None (occurrence: None)
  Receive Date: 20100818
  Receipt Date: 20100810
  Transmission Date: 20110219
  Serious: Yes (Other)
  Sender: FDA-Public Use
  Company Number: US-ROCHE-709910

PATIENT
  Sex: Male
  Weight: 5.6 kg

DRUGS (5)
  1. VESANOID [Suspect]
     Route: 048
     Dates: start: 20100525
  2. VESANOID [Suspect]
     Dosage: DOSE LOWERED
     Route: 048
     Dates: start: 20100610
  3. MICAFUNGIN [Concomitant]
     Indication: PROPHYLAXIS
     Route: 042
     Dates: start: 20100609, end: 20100619
  4. LINEZOLID [Concomitant]
     Indication: INFECTION
     Route: 042
     Dates: start: 20100610, end: 20100617
  5. MEROPENEM [Concomitant]
     Indication: INFECTION
     Route: 042
     Dates: start: 20100604, end: 20100610

REACTIONS (4)
  - CELLULITIS [None]
  - PSYCHOTIC DISORDER [None]
  - PYREXIA [None]
  - SLEEP TERROR [None]
